FAERS Safety Report 9507910 (Version 1)
Quarter: 2013Q3

REPORT INFORMATION
  Report Type: Spontaneous
  Country: US (occurrence: None)
  Receive Date: 20130906
  Receipt Date: 20130906
  Transmission Date: 20140515
  Serious: No
  Sender: FDA-Public Use
  Company Number: None

PATIENT
  Age: 61 Year
  Sex: Male
  Weight: 105.69 kg

DRUGS (1)
  1. BENICAR [Suspect]
     Indication: BLOOD PRESSURE INCREASED
     Dosage: 30 MINUTES BETWEEN FIRST DOSE AND REAC?ONCE PER DAY
     Route: 048

REACTIONS (1)
  - Headache [None]
